FAERS Safety Report 24006712 (Version 1)
Quarter: 2024Q2

REPORT INFORMATION
  Report Type: Spontaneous
  Country: US (occurrence: US)
  Receive Date: 20240624
  Receipt Date: 20240624
  Transmission Date: 20240716
  Serious: No
  Sender: FDA-Public Use
  Company Number: US-BRISTOL-MYERS SQUIBB COMPANY-2024-100705

PATIENT
  Age: 63 Year
  Sex: Female

DRUGS (1)
  1. LENALIDOMIDE [Suspect]
     Active Substance: LENALIDOMIDE
     Indication: Plasma cell myeloma
     Dosage: FREQUENCY: 14 (UNITS UNSPECIFIED)
     Dates: start: 20210209

REACTIONS (7)
  - Headache [Unknown]
  - Dizziness [Unknown]
  - Hypertension [Unknown]
  - Lacrimation increased [Unknown]
  - Eye pruritus [Unknown]
  - Vision blurred [Unknown]
  - Off label use [Unknown]
